FAERS Safety Report 9280327 (Version 3)
Quarter: 2013Q3

REPORT INFORMATION
  Report Type: Report from Study
  Country: US (occurrence: US)
  Receive Date: 20130509
  Receipt Date: 20130701
  Transmission Date: 20140515
  Serious: Yes (Death)
  Sender: FDA-Public Use
  Company Number: US-ELI_LILLY_AND_COMPANY-US201305000989

PATIENT
  Sex: Female

DRUGS (1)
  1. TERIPARATIDE [Suspect]
     Dosage: UNK UNK, QD
     Dates: end: 20130408

REACTIONS (2)
  - Cardiac failure congestive [Fatal]
  - Sepsis [Fatal]
